FAERS Safety Report 9374940 (Version 5)
Quarter: 2014Q2

REPORT INFORMATION
  Report Type: Report from Study
  Country: GB (occurrence: GB)
  Receive Date: 20130628
  Receipt Date: 20140402
  Transmission Date: 20141212
  Serious: Yes (Hospitalization)
  Sender: FDA-Public Use
  Company Number: GB-SANOFI-AVENTIS-2013SA062550

PATIENT
  Age: 67 Year
  Sex: Male

DRUGS (23)
  1. AFLIBERCEPT [Suspect]
     Indication: COLORECTAL CANCER METASTATIC
     Route: 042
     Dates: start: 20130416, end: 20130416
  2. AFLIBERCEPT [Suspect]
     Indication: COLORECTAL CANCER METASTATIC
     Route: 042
     Dates: start: 20130530, end: 20130530
  3. 5-FU [Suspect]
     Indication: COLORECTAL CANCER METASTATIC
     Route: 040
     Dates: start: 20130416, end: 20130416
  4. 5-FU [Suspect]
     Indication: COLORECTAL CANCER METASTATIC
     Route: 041
     Dates: start: 20130416
  5. 5-FU [Suspect]
     Indication: COLORECTAL CANCER METASTATIC
     Route: 040
     Dates: start: 20130508, end: 20130508
  6. 5-FU [Suspect]
     Indication: COLORECTAL CANCER METASTATIC
     Route: 041
     Dates: start: 20130508
  7. IRINOTECAN [Suspect]
     Indication: COLORECTAL CANCER METASTATIC
     Route: 042
     Dates: start: 20130416, end: 20130416
  8. IRINOTECAN [Suspect]
     Indication: COLORECTAL CANCER METASTATIC
     Route: 042
     Dates: start: 20130530, end: 20130530
  9. LEUCOVORIN [Suspect]
     Indication: COLORECTAL CANCER METASTATIC
     Route: 042
     Dates: start: 20130416, end: 20130416
  10. LEUCOVORIN [Suspect]
     Indication: COLORECTAL CANCER METASTATIC
     Route: 042
     Dates: start: 20130530, end: 20130530
  11. ANGIOTENSIN II ANTAGONISTS [Concomitant]
     Dates: start: 2004
  12. GRANULOCYTE COLONY-STIMULATING FACTOR NOS [Concomitant]
     Dosage: DURING CYCLE 1
  13. ANTIPROPULSIVES [Concomitant]
     Dates: start: 2010
  14. ANALGESICS [Concomitant]
     Dates: start: 20130520
  15. OMEPRAZOLE [Concomitant]
     Dates: start: 20130430
  16. METOCLOPRAMIDE [Concomitant]
     Dates: start: 2013
  17. ANTITHROMBOTIC AGENTS [Concomitant]
     Indication: PROPHYLAXIS
     Dates: start: 2013
  18. BISMUTH SUBGALLATE/BORIC ACID/MYROXYLON BALSAMUM VAR. PEREIRAE BALSAM/ZINC OXIDE/BISMUTH HYDROXIDE [Concomitant]
     Dates: start: 20130420
  19. CLEXANE [Concomitant]
     Indication: PROPHYLAXIS
     Dates: start: 20130425
  20. AMITRIPTYLINE [Concomitant]
     Dates: start: 2013
  21. DIURETICS [Concomitant]
     Indication: HYPERTENSION
     Dates: start: 20130530
  22. ANTIEMETICS AND ANTINAUSEANTS [Concomitant]
     Dates: start: 20130530
  23. LOPERAMIDE [Concomitant]
     Dates: start: 2013

REACTIONS (1)
  - Atrial flutter [Recovered/Resolved]
